FAERS Safety Report 21365436 (Version 1)
Quarter: 2022Q3

REPORT INFORMATION
  Report Type: Spontaneous
  Country: US (occurrence: US)
  Receive Date: 20220922
  Receipt Date: 20220922
  Transmission Date: 20221027
  Serious: Yes (Hospitalization, Other)
  Sender: FDA-Public Use
  Company Number: US-AMGEN-USASP2022160520

PATIENT
  Age: 61 Year
  Sex: Female

DRUGS (1)
  1. PROLIA [Suspect]
     Active Substance: DENOSUMAB
     Indication: Osteoporosis
     Dosage: 60 MILLIGRAM
     Route: 058
     Dates: start: 201909

REACTIONS (8)
  - Stevens-Johnson syndrome [Unknown]
  - Osteomyelitis [Unknown]
  - Adverse event [Recovered/Resolved]
  - Myocardial infarction [Unknown]
  - Cataract [Unknown]
  - Endocarditis [Unknown]
  - Heart valve incompetence [Unknown]
  - Oesophageal disorder [Not Recovered/Not Resolved]

NARRATIVE: CASE EVENT DATE: 20190101
